FAERS Safety Report 13618715 (Version 4)
Quarter: 2019Q4

REPORT INFORMATION
  Report Type: Report from Study
  Country: US (occurrence: US)
  Receive Date: 20170606
  Receipt Date: 20191021
  Transmission Date: 20200122
  Serious: No
  Sender: FDA-Public Use
  Company Number: US-JAZZ-2017-US-006589

PATIENT
  Age: 57 Year
  Sex: Female

DRUGS (48)
  1. CROMOLYN SODIUM. [Concomitant]
     Active Substance: CROMOLYN SODIUM
  2. LORTAB [Concomitant]
     Active Substance: ACETAMINOPHEN\HYDROCODONE BITARTRATE
  3. PREDNISONE. [Concomitant]
     Active Substance: PREDNISONE
  4. LISINOPRIL. [Concomitant]
     Active Substance: LISINOPRIL
  5. MELOXICAM. [Concomitant]
     Active Substance: MELOXICAM
  6. XOPENEX HFA [Concomitant]
     Active Substance: LEVALBUTEROL TARTRATE
  7. FUROSEMIDE. [Concomitant]
     Active Substance: FUROSEMIDE
  8. AMLODIPINE BESYLATE. [Concomitant]
     Active Substance: AMLODIPINE BESYLATE
  9. QVAR [Concomitant]
     Active Substance: BECLOMETHASONE DIPROPIONATE
  10. URIBEL [Concomitant]
     Active Substance: HYOSCYAMINE SULFATE\METHENAMINE\METHYLENE BLUE\PHENYL SALICYLATE\SODIUM PHOSPHATE, MONOBASIC, MONOHYDRATE
  11. ESTRADIOL CYPIONATE [Concomitant]
     Active Substance: ESTRADIOL CYPIONATE
  12. OMEPRAZOLE. [Concomitant]
     Active Substance: OMEPRAZOLE
  13. SUMATRIPTAN. [Concomitant]
     Active Substance: SUMATRIPTAN
  14. NASACORT ALLERGY 24HR [Concomitant]
     Active Substance: TRIAMCINOLONE ACETONIDE
  15. AUBAGIO [Concomitant]
     Active Substance: TERIFLUNOMIDE
  16. LIDODERM [Concomitant]
     Active Substance: LIDOCAINE
  17. NEURONTIN [Concomitant]
     Active Substance: GABAPENTIN
  18. ZYRTEC [Concomitant]
     Active Substance: CETIRIZINE HYDROCHLORIDE
  19. AMPYRA [Concomitant]
     Active Substance: DALFAMPRIDINE
  20. MINOCYCLINE [Concomitant]
     Active Substance: MINOCYCLINE HYDROCHLORIDE
  21. BROVANA [Concomitant]
     Active Substance: ARFORMOTEROL TARTRATE
  22. SPIRONOLACTONE. [Concomitant]
     Active Substance: SPIRONOLACTONE
  23. OXYCONTIN [Concomitant]
     Active Substance: OXYCODONE HYDROCHLORIDE
  24. LINZESS [Concomitant]
     Active Substance: LINACLOTIDE
  25. PIRBUTEROL ACETATE [Concomitant]
     Active Substance: PIRBUTEROL ACETATE
  26. BACLOFEN. [Concomitant]
     Active Substance: BACLOFEN
  27. MODAFINIL. [Concomitant]
     Active Substance: MODAFINIL
  28. RESTASIS [Concomitant]
     Active Substance: CYCLOSPORINE
  29. XYREM [Suspect]
     Active Substance: SODIUM OXYBATE
     Indication: NARCOLEPSY
     Dosage: 2.25 G, BID
     Route: 048
     Dates: start: 200306, end: 200601
  30. XYREM [Suspect]
     Active Substance: SODIUM OXYBATE
     Indication: CATAPLEXY
     Dosage: 4.5 G, BID
     Route: 048
     Dates: start: 200601
  31. BENTYL [Concomitant]
     Active Substance: DICYCLOMINE HYDROCHLORIDE
  32. NIFEDIPINE. [Concomitant]
     Active Substance: NIFEDIPINE
  33. ATROVENT [Concomitant]
     Active Substance: IPRATROPIUM BROMIDE
  34. BOTOX COSMETIC [Concomitant]
     Active Substance: ONABOTULINUMTOXINA
  35. TRAMADOL HYDROCHLORIDE. [Concomitant]
     Active Substance: TRAMADOL HYDROCHLORIDE
  36. TOVIAZ [Concomitant]
     Active Substance: FESOTERODINE FUMARATE
  37. CLONIDINE HCL [Concomitant]
     Active Substance: CLONIDINE HYDROCHLORIDE
  38. HYDROCODONE/ACETAMINOPHEN [Concomitant]
     Active Substance: ACETAMINOPHEN\HYDROCODONE
  39. TRAMADOL HCL [Concomitant]
     Active Substance: TRAMADOL HYDROCHLORIDE
  40. LOSARTAN / HIDROCLOROTIAZIDA [Concomitant]
     Active Substance: HYDROCHLOROTHIAZIDE\LOSARTAN
  41. LEVSIN [Concomitant]
     Active Substance: HYOSCYAMINE SULFATE
  42. SOMA [Concomitant]
     Active Substance: CARISOPRODOL
  43. CARISOPRODOL. [Concomitant]
     Active Substance: CARISOPRODOL
  44. LEVOTHYROXINE SODIUM. [Concomitant]
     Active Substance: LEVOTHYROXINE SODIUM
  45. OXYCODONE HYDROCHLORIDE. [Concomitant]
     Active Substance: OXYCODONE HYDROCHLORIDE
  46. SINGULAIR [Concomitant]
     Active Substance: MONTELUKAST SODIUM
  47. SUCRALFATE. [Concomitant]
     Active Substance: SUCRALFATE
  48. TAMSULOSIN HCL [Concomitant]
     Active Substance: TAMSULOSIN HYDROCHLORIDE

REACTIONS (3)
  - Therapeutic response unexpected [Unknown]
  - Laryngitis [Unknown]
  - Pre-existing condition improved [Unknown]

NARRATIVE: CASE EVENT DATE: 201705
